FAERS Safety Report 21479993 (Version 1)
Quarter: 2022Q4

REPORT INFORMATION
  Report Type: Spontaneous
  Country: US (occurrence: None)
  Receive Date: 20221019
  Receipt Date: 20221019
  Transmission Date: 20230113
  Serious: Yes (Life-Threatening, Hospitalization, Disabling)
  Sender: FDA-Public Use
  Company Number: None

PATIENT
  Age: 28 Year
  Sex: Female

DRUGS (1)
  1. SLYND [Suspect]
     Active Substance: DROSPIRENONE
     Indication: Contraception
     Dosage: FREQUENCY : DAILY;?
     Route: 048
     Dates: start: 20220506, end: 20220831

REACTIONS (3)
  - Pregnancy on oral contraceptive [None]
  - Therapy interrupted [None]
  - Ectopic pregnancy under hormonal contraception [None]

NARRATIVE: CASE EVENT DATE: 20221014
